FAERS Safety Report 5766052-1 (Version None)
Quarter: 2008Q2

REPORT INFORMATION
  Report Type: 
  Country: None (occurrence: None)
  Receive Date: 20080611
  Receipt Date: 20080603
  Transmission Date: 20081010
  Serious: Yes (Hospitalization, Other)
  Sender: FDA-Public Use
  Company Number: US-AVENTIS-200813441US

PATIENT
  Age: 20 Year
  Sex: Male

DRUGS (3)
  1. LANTUS [Suspect]
     Dosage: DOSE: 32-60
     Route: 058
  2. OPTICLIK (INSULIN INJECTION PEN) [Suspect]
  3. HUMALOG [Concomitant]
     Dosage: DOSE: UNK

REACTIONS (4)
  - BLOOD GLUCOSE INCREASED [None]
  - HOSPITALISATION [None]
  - MALAISE [None]
  - ROAD TRAFFIC ACCIDENT [None]
